FAERS Safety Report 17569437 (Version 2)
Quarter: 2020Q3

REPORT INFORMATION
  Report Type: Report from Study
  Country: None (occurrence: US)
  Receive Date: 20200323
  Receipt Date: 20200814
  Transmission Date: 20201102
  Serious: Yes (Hospitalization, Other)
  Sender: FDA-Public Use
  Company Number: US-ABBVIE-20K-163-3330321-00

PATIENT
  Age: 44 Year
  Sex: Male
  Weight: 107.14 kg

DRUGS (13)
  1. SERTRALINE [Concomitant]
     Active Substance: SERTRALINE HYDROCHLORIDE
     Indication: PRODUCT USED FOR UNKNOWN INDICATION
  2. TRULANCE [Concomitant]
     Active Substance: PLECANATIDE
     Indication: CONSTIPATION
  3. CETIRIZINE [Concomitant]
     Active Substance: CETIRIZINE HYDROCHLORIDE
     Indication: ANTIALLERGIC THERAPY
  4. FAMOTIDINE. [Concomitant]
     Active Substance: FAMOTIDINE
     Indication: ANTIALLERGIC THERAPY
  5. MOTEGRITY [Concomitant]
     Active Substance: PRUCALOPRIDE SUCCINATE
     Indication: GASTRIC DISORDER
  6. BUPROPION XL [Concomitant]
     Active Substance: BUPROPION
     Indication: ANTIDEPRESSANT THERAPY
  7. TOPIRAMATE. [Concomitant]
     Active Substance: TOPIRAMATE
     Indication: ANXIETY
  8. FERROUS SULFATE. [Concomitant]
     Active Substance: FERROUS SULFATE
     Indication: ANAEMIA
  9. CLOZAPINE. [Concomitant]
     Active Substance: CLOZAPINE
     Indication: PSYCHOTHERAPY
  10. FLUOXETINE [Concomitant]
     Active Substance: FLUOXETINE HYDROCHLORIDE
     Indication: ANTIDEPRESSANT THERAPY
  11. OXYBUTYNIN. [Concomitant]
     Active Substance: OXYBUTYNIN CHLORIDE
     Indication: MUSCLE RELAXANT THERAPY
  12. DICLOFENAC [Concomitant]
     Active Substance: DICLOFENAC
     Indication: PRODUCT USED FOR UNKNOWN INDICATION
  13. HUMIRA [Suspect]
     Active Substance: ADALIMUMAB
     Indication: CROHN^S DISEASE
     Route: 058
     Dates: start: 2015

REACTIONS (5)
  - Gastrointestinal polyp haemorrhage [Recovered/Resolved]
  - Hypotension [Recovered/Resolved]
  - Syncope [Recovered/Resolved]
  - Haemorrhage [Recovered/Resolved]
  - Large intestine perforation [Unknown]

NARRATIVE: CASE EVENT DATE: 202003
